FAERS Safety Report 9306186 (Version 3)
Quarter: 2013Q3

REPORT INFORMATION
  Report Type: Spontaneous
  Country: US (occurrence: US)
  Receive Date: 20130523
  Receipt Date: 20130807
  Transmission Date: 20140515
  Serious: Yes (Hospitalization, Other)
  Sender: FDA-Public Use
  Company Number: US-GLAXOSMITHKLINE-A1024398B

PATIENT
  Age: 0 Day
  Sex: Male
  Weight: 1.3 kg

DRUGS (3)
  1. ZOFRAN [Suspect]
     Indication: PRODUCT USED FOR UNKNOWN INDICATION
     Route: 064
  2. ENOXAPARIN [Suspect]
     Indication: PRODUCT USED FOR UNKNOWN INDICATION
     Route: 064
  3. SOLIRIS [Suspect]
     Indication: PAROXYSMAL NOCTURNAL HAEMOGLOBINURIA
     Dosage: 1200MG SEE DOSAGE TEXT
     Route: 064
     Dates: start: 20130305

REACTIONS (8)
  - Foetal growth restriction [Unknown]
  - Premature baby [Recovering/Resolving]
  - Low birth weight baby [Recovering/Resolving]
  - Small for dates baby [Unknown]
  - Microcephaly [Unknown]
  - Hyperbilirubinaemia neonatal [Unknown]
  - Enteral nutrition [Unknown]
  - Foetal exposure during pregnancy [Unknown]
